FAERS Safety Report 18383401 (Version 1)
Quarter: 2020Q4

REPORT INFORMATION
  Report Type: Spontaneous
  Country: TR (occurrence: TR)
  Receive Date: 20201014
  Receipt Date: 20201014
  Transmission Date: 20210114
  Serious: Yes (Hospitalization, Other)
  Sender: FDA-Public Use
  Company Number: NVSC2020TR268496

PATIENT
  Age: 58 Year
  Sex: Male

DRUGS (6)
  1. DOMPERIDONE [Concomitant]
     Active Substance: DOMPERIDONE
     Indication: PRODUCT USED FOR UNKNOWN INDICATION
     Dosage: UNK
     Route: 065
  2. ATORVASTATIN [Concomitant]
     Active Substance: ATORVASTATIN
     Indication: HYPERGLYCAEMIA
     Dosage: UNK
     Route: 065
  3. VILDAGLIPTIN [Concomitant]
     Active Substance: VILDAGLIPTIN
     Indication: HYPERGLYCAEMIA
     Dosage: UNK
     Route: 065
  4. PANCREATIN [Concomitant]
     Active Substance: PANCRELIPASE
     Indication: HYPERGLYCAEMIA
     Dosage: UNK
     Route: 065
  5. DESLORATADINE. [Concomitant]
     Active Substance: DESLORATADINE
     Indication: PRODUCT USED FOR UNKNOWN INDICATION
     Dosage: UNK
     Route: 065
  6. TERBINAFINE. [Suspect]
     Active Substance: TERBINAFINE
     Indication: ONYCHOMYCOSIS
     Dosage: UNK
     Route: 065

REACTIONS (12)
  - Drug-induced liver injury [Unknown]
  - Bilirubin conjugated increased [Unknown]
  - Cholestatic liver injury [Unknown]
  - Hepatitis cholestatic [Unknown]
  - Hyponatraemia [Recovered/Resolved]
  - Hepatic enzyme increased [Recovered/Resolved]
  - Pseudohyponatraemia [Recovered/Resolved]
  - Blood bilirubin increased [Unknown]
  - Hepatitis toxic [Unknown]
  - Abdominal pain [Recovered/Resolved]
  - Jaundice [Unknown]
  - Hypercholesterolaemia [Recovered/Resolved]
